FAERS Safety Report 18225487 (Version 22)
Quarter: 2024Q1

REPORT INFORMATION
  Report Type: Spontaneous
  Country: FR (occurrence: FR)
  Receive Date: 20200903
  Receipt Date: 20240212
  Transmission Date: 20240410
  Serious: Yes (Death, Life-Threatening, Hospitalization, Other)
  Sender: FDA-Public Use
  Company Number: FR-GLAXOSMITHKLINE-FR2020158924

PATIENT
  Age: 74 Year
  Sex: Male

DRUGS (132)
  1. AMIODARONE [Suspect]
     Active Substance: AMIODARONE
     Indication: Atrial fibrillation
     Dosage: 907.2 MILLIGRAM, ONCE A DAY 1814.4 MG CUMULATIVE DOSE
     Route: 042
     Dates: start: 20200725, end: 20200727
  2. AMIODARONE [Suspect]
     Active Substance: AMIODARONE
     Dosage: 1814.4 MILLIGRAM
     Route: 042
     Dates: start: 20200725, end: 20200727
  3. CALCIUM [Suspect]
     Active Substance: CALCIUM
     Indication: Product used for unknown indication
     Dosage: UNK
     Route: 065
  4. DIAZEPAM [Suspect]
     Active Substance: DIAZEPAM
     Indication: Product used for unknown indication
     Dosage: UNK
     Route: 065
  5. DIAZEPAM [Suspect]
     Active Substance: DIAZEPAM
     Dosage: 746.35 MILLIGRAM
     Route: 065
  6. ENOXAPARIN [Suspect]
     Active Substance: ENOXAPARIN
     Indication: Phlebitis
     Dosage: 6000 INTERNATIONAL UNIT
     Route: 058
     Dates: start: 20200708, end: 20200807
  7. ENOXAPARIN [Suspect]
     Active Substance: ENOXAPARIN
     Dosage: 6000 INTERNATIONAL UNIT
     Route: 058
  8. ENOXAPARIN [Suspect]
     Active Substance: ENOXAPARIN
     Dosage: 18000 INTERNATIONAL UNIT
     Route: 058
  9. FUROSEMIDE [Suspect]
     Active Substance: FUROSEMIDE
     Indication: Product used for unknown indication
     Dosage: UNK
     Route: 065
  10. HYDROXYZINE [Suspect]
     Active Substance: HYDROXYZINE HYDROCHLORIDE
     Indication: Product used for unknown indication
     Dosage: UNK
     Route: 065
  11. IPRATROPIUM [Suspect]
     Active Substance: IPRATROPIUM
     Indication: Inhalation therapy
     Dosage: 6 MILLIGRAM
     Route: 055
  12. IPRATROPIUM [Suspect]
     Active Substance: IPRATROPIUM
     Dosage: 0.5 MILLIGRAM, 3 TIMES A DAY
     Route: 055
     Dates: start: 20200730, end: 20200803
  13. IPRATROPIUM [Suspect]
     Active Substance: IPRATROPIUM
     Dosage: 1.5 MILLIGRAM, ONCE A DAY
     Route: 055
     Dates: start: 20200730, end: 20200803
  14. IPRATROPIUM [Suspect]
     Active Substance: IPRATROPIUM
     Dosage: 4.5 MILLIGRAM, ONCE A DAY
     Dates: start: 20200730, end: 20200803
  15. IPRATROPIUM [Suspect]
     Active Substance: IPRATROPIUM
     Dosage: 13.5 MILLIGRAM, ONCE A DAY
  16. LANSOPRAZOLE [Suspect]
     Active Substance: LANSOPRAZOLE
     Indication: Gastrointestinal disorder prophylaxis
     Dosage: 78 MILLIGRAM
     Route: 048
     Dates: start: 20200701, end: 20200805
  17. LANSOPRAZOLE [Suspect]
     Active Substance: LANSOPRAZOLE
     Indication: Prophylaxis
     Dosage: 3 MILLIGRAM, ONCE A DAY
     Route: 048
     Dates: start: 20200210, end: 20200805
  18. LANSOPRAZOLE [Suspect]
     Active Substance: LANSOPRAZOLE
     Dosage: 3 MILLIGRAM, ONCE A DAY
     Route: 048
     Dates: start: 20200710, end: 20200805
  19. LANSOPRAZOLE [Suspect]
     Active Substance: LANSOPRAZOLE
     Dosage: 30 MILLIGRAM, ONCE A DAY, 3 MG SINGLE
     Route: 048
     Dates: start: 20200710, end: 20200805
  20. LANSOPRAZOLE [Suspect]
     Active Substance: LANSOPRAZOLE
     Dosage: 1 DOSAGE FORM
     Route: 048
  21. LANSOPRAZOLE [Suspect]
     Active Substance: LANSOPRAZOLE
     Dosage: 30 MILLIGRAM
     Route: 048
  22. LANSOPRAZOLE [Suspect]
     Active Substance: LANSOPRAZOLE
     Dosage: 1425 MILLIGRAM, QD
     Route: 065
  23. LANSOPRAZOLE [Suspect]
     Active Substance: LANSOPRAZOLE
     Dosage: 78 MILLIGRAM
     Route: 048
     Dates: start: 20200805
  24. LANSOPRAZOLE [Suspect]
     Active Substance: LANSOPRAZOLE
     Dosage: 78 MILLIGRAM
     Route: 048
     Dates: start: 20200710
  25. LOPERAMIDE [Suspect]
     Active Substance: LOPERAMIDE
     Indication: Diarrhoea
     Dosage: 4 MILLIGRAM, ONCE A DAY, SINGLE
     Route: 048
     Dates: start: 20200804, end: 20200804
  26. LEVOFLOXACIN [Suspect]
     Active Substance: LEVOFLOXACIN
     Indication: Product used for unknown indication
     Dosage: UNK
     Route: 065
  27. POLYETHYLENE GLYCOLS [Suspect]
     Active Substance: POLYETHYLENE GLYCOLS
     Indication: Constipation
     Dosage: 2 SACHET, TWO TIMES A DAY
     Route: 048
     Dates: start: 20200713, end: 20200715
  28. POLYETHYLENE GLYCOLS [Suspect]
     Active Substance: POLYETHYLENE GLYCOLS
     Dosage: 4 DOSAGE FORM, ONCE A DAY (2 SACHET, BID)
     Route: 048
     Dates: start: 20200713, end: 20200715
  29. POLYETHYLENE GLYCOLS [Suspect]
     Active Substance: POLYETHYLENE GLYCOLS
     Dosage: 12 DOSAGE FORM, ONCE A DAY
     Route: 065
  30. POLYETHYLENE GLYCOLS [Suspect]
     Active Substance: POLYETHYLENE GLYCOLS
     Dosage: 16 DOSAGE FORM
     Route: 048
  31. ACETAMINOPHEN [Suspect]
     Active Substance: ACETAMINOPHEN
     Indication: Pyrexia
     Dosage: 1 GRAM
     Route: 042
     Dates: start: 20200719, end: 20200730
  32. PIPERACILLIN AND TAZOBACTAM [Suspect]
     Active Substance: PIPERACILLIN SODIUM\TAZOBACTAM SODIUM
     Indication: Pneumonia
     Dosage: 84 GRAM, 3 TIMES A DAY
     Route: 042
     Dates: start: 20200723, end: 20200730
  33. PIPERACILLIN AND TAZOBACTAM [Suspect]
     Active Substance: PIPERACILLIN SODIUM\TAZOBACTAM SODIUM
     Indication: Tracheobronchitis
     Dosage: 4 GRAM, 3 TIMES A DAY (12 GRAM, ONCE A DAY)
     Route: 042
     Dates: start: 20200723, end: 20200730
  34. PIPERACILLIN AND TAZOBACTAM [Suspect]
     Active Substance: PIPERACILLIN SODIUM\TAZOBACTAM SODIUM
     Dosage: 12 GRAM, ONCE A DAY
     Route: 042
     Dates: start: 20200723, end: 20200730
  35. PIPERACILLIN AND TAZOBACTAM [Suspect]
     Active Substance: PIPERACILLIN SODIUM\TAZOBACTAM SODIUM
     Dosage: 12 GRAM
     Route: 042
  36. PIPERACILLIN AND TAZOBACTAM [Suspect]
     Active Substance: PIPERACILLIN SODIUM\TAZOBACTAM SODIUM
     Dosage: 84 GRAM
     Route: 042
  37. REMIFENTANIL [Suspect]
     Active Substance: REMIFENTANIL
     Indication: Sedation
     Dosage: 0.1 MCG/KG/MIN, CO
     Route: 042
     Dates: start: 20200720, end: 20200730
  38. REMIFENTANIL [Suspect]
     Active Substance: REMIFENTANIL
     Dosage: 1 MCG, 1 MCG/KG/MIN
     Route: 042
     Dates: start: 20200720, end: 20200730
  39. SERTRALINE [Suspect]
     Active Substance: SERTRALINE HYDROCHLORIDE
     Indication: Depression
     Dosage: 746.35 MILLIGRAM
     Route: 048
     Dates: start: 20200726, end: 20200810
  40. SERTRALINE [Suspect]
     Active Substance: SERTRALINE HYDROCHLORIDE
     Indication: Pneumonia
     Dosage: 9 INTERNATIONAL UNIT, ONCE A DAY
     Route: 042
     Dates: start: 20200708, end: 20200715
  41. SERTRALINE [Suspect]
     Active Substance: SERTRALINE HYDROCHLORIDE
     Dosage: 50 MILLIGRAM, ONCE A DAY (SINGLE)
     Route: 048
     Dates: start: 20200726, end: 20200810
  42. SERTRALINE [Suspect]
     Active Substance: SERTRALINE HYDROCHLORIDE
     Dosage: 3 INTERNATIONAL UNIT, 3 TIMES A DAY
     Route: 042
     Dates: start: 20200708, end: 20200715
  43. URAPIDIL [Suspect]
     Active Substance: URAPIDIL
     Indication: Hypertension
     Dosage: 5 MILLIGRAM, EVERY HOUR
     Route: 042
     Dates: start: 20200709, end: 20200709
  44. THIAMINE HYDROCHLORIDE [Suspect]
     Active Substance: THIAMINE HYDROCHLORIDE
     Indication: Product used for unknown indication
     Dosage: UNK
     Route: 065
  45. CLONIDINE [Suspect]
     Active Substance: CLONIDINE
     Indication: Hypertension
     Dosage: UNK
     Route: 042
     Dates: start: 20200717, end: 20200717
  46. CEFOTAXIME [Suspect]
     Active Substance: CEFOTAXIME SODIUM
     Indication: Pneumonia
     Dosage: 84 GRAM, ONCE A DAY
     Route: 042
  47. CEFOTAXIME [Suspect]
     Active Substance: CEFOTAXIME SODIUM
     Dosage: 42 GRAM
     Route: 042
  48. CEFOTAXIME [Suspect]
     Active Substance: CEFOTAXIME SODIUM
     Dosage: 2 GRAM, 3 TIMES A DAY
     Route: 042
     Dates: start: 20200708, end: 20200715
  49. CEFOTAXIME [Suspect]
     Active Substance: CEFOTAXIME SODIUM
     Dosage: 6 GRAM, ONCE A DAY
     Route: 042
     Dates: start: 20200708, end: 20200715
  50. CEFOTAXIME [Suspect]
     Active Substance: CEFOTAXIME SODIUM
     Dosage: 42 GRAM, TWO TIMES A DAY
     Route: 042
     Dates: start: 20200708
  51. CISATRACURIUM BESYLATE [Suspect]
     Active Substance: CISATRACURIUM BESYLATE
     Indication: Neuromuscular blocking therapy
     Dosage: 20 MILLIGRAM
     Route: 042
     Dates: start: 20200715
  52. CISATRACURIUM BESYLATE [Suspect]
     Active Substance: CISATRACURIUM BESYLATE
     Indication: Endotracheal intubation
  53. CLONIDINE [Suspect]
     Active Substance: CLONIDINE
     Indication: Hypertension
     Dosage: UNK
     Route: 042
     Dates: start: 20200717
  54. DIAMOX SEQUELS [Suspect]
     Active Substance: ACETAZOLAMIDE
     Indication: Product used for unknown indication
     Dosage: UNK
     Route: 058
  55. DUPHALAC [Suspect]
     Active Substance: LACTULOSE
     Indication: Constipation
     Dosage: 20 GRAM, TWO TIMES A DAY
     Route: 048
     Dates: start: 20200713, end: 20200715
  56. DUPHALAC [Suspect]
     Active Substance: LACTULOSE
     Dosage: 80 MILLIGRAM
     Route: 048
  57. DUPHALAC [Suspect]
     Active Substance: LACTULOSE
     Dosage: 40 MILLIGRAM, ONCE A DAY
     Route: 048
     Dates: start: 20200713, end: 20200715
  58. DUPHALAC [Suspect]
     Active Substance: LACTULOSE
     Dosage: 40 GRAM
     Route: 048
  59. URAPIDIL [Suspect]
     Active Substance: URAPIDIL
     Indication: Hypertension
     Dosage: 5 MILLIGRAM/HOUR,CO
     Route: 042
     Dates: start: 20200709, end: 20200709
  60. URAPIDIL [Suspect]
     Active Substance: URAPIDIL
     Dosage: 120 MILLIGRAM
     Route: 065
  61. FENOTEROL\IPRATROPIUM BROMIDE [Suspect]
     Active Substance: FENOTEROL\IPRATROPIUM BROMIDE
     Indication: Inhalation therapy
     Dosage: 6 MILLIGRAM
  62. FENOTEROL\IPRATROPIUM BROMIDE [Suspect]
     Active Substance: FENOTEROL\IPRATROPIUM BROMIDE
     Dosage: 0.5 MILLIGRAM, 3 TIMES A DAY
     Dates: start: 20200730, end: 20200803
  63. FENOTEROL\IPRATROPIUM BROMIDE [Suspect]
     Active Substance: FENOTEROL\IPRATROPIUM BROMIDE
     Dosage: 1.5 MILLIGRAM, 3 TIMES A DAY
     Dates: start: 20200730, end: 20200803
  64. CALCIUM GLUCONATE [Suspect]
     Active Substance: CALCIUM GLUCONATE
     Indication: Product used for unknown indication
     Dosage: UNK
     Route: 065
  65. HUMALOG [Suspect]
     Active Substance: INSULIN LISPRO
     Indication: Product used for unknown indication
     Dosage: 1 INTERNATIONAL UNIT,CO
     Route: 042
     Dates: start: 20200709, end: 20200730
  66. IMODIUM [Suspect]
     Active Substance: LOPERAMIDE HYDROCHLORIDE
     Indication: Diarrhoea
     Dosage: 4 MILLIGRAM, ONCE A DAY, SINGLE
     Route: 048
     Dates: start: 20200804, end: 20200804
  67. INSULIN LISPRO [Suspect]
     Active Substance: INSULIN LISPRO
     Indication: Product used for unknown indication
     Dosage: 1 INTERNATIONAL UNIT
     Route: 042
     Dates: start: 20200709, end: 20200730
  68. ISUPREL [Suspect]
     Active Substance: ISOPROTERENOL HYDROCHLORIDE
     Indication: Product used for unknown indication
     Dosage: UNK
     Route: 065
     Dates: start: 20200711, end: 20200713
  69. ISOSORBIDE DINITRATE [Suspect]
     Active Substance: ISOSORBIDE DINITRATE
     Indication: Product used for unknown indication
     Dosage: UNK
     Route: 065
     Dates: start: 20200714, end: 20200720
  70. DUPHALAC [Suspect]
     Active Substance: LACTULOSE
     Indication: Constipation
     Dosage: 80 MILLIGRAM
     Route: 048
  71. DUPHALAC [Suspect]
     Active Substance: LACTULOSE
     Dosage: 40 MILLIGRAM
     Route: 048
  72. DUPHALAC [Suspect]
     Active Substance: LACTULOSE
     Dosage: 20 MILLIGRAM
     Route: 048
     Dates: start: 20200713, end: 20200715
  73. DUPHALAC [Suspect]
     Active Substance: LACTULOSE
     Dosage: 80 MILLIGRAM
     Route: 048
  74. DUPHALAC [Suspect]
     Active Substance: LACTULOSE
     Dosage: 80 MILLIGRAM
     Route: 048
  75. DUPHALAC [Suspect]
     Active Substance: LACTULOSE
     Dosage: 80 GRAM
     Route: 048
  76. DUPHALAC [Suspect]
     Active Substance: LACTULOSE
     Dosage: 40 GRAM, ONCE A DAY
     Route: 048
  77. DUPHALAC [Suspect]
     Active Substance: LACTULOSE
     Dosage: 80 GRAM
     Route: 048
  78. DUPHALAC [Suspect]
     Active Substance: LACTULOSE
     Dosage: 80 GRAM
     Route: 048
  79. DUPHALAC [Suspect]
     Active Substance: LACTULOSE
     Dosage: 80 GRAM
     Route: 048
  80. DUPHALAC [Suspect]
     Active Substance: LACTULOSE
     Dosage: 80 GRAM
     Route: 048
  81. DUPHALAC [Suspect]
     Active Substance: LACTULOSE
     Dosage: 80 GRAM
     Route: 048
  82. DUPHALAC [Suspect]
     Active Substance: LACTULOSE
     Dosage: 80 GRAM
     Route: 048
  83. DUPHALAC [Suspect]
     Active Substance: LACTULOSE
     Dosage: 40 GRAM, ONCE A DAY
     Route: 048
     Dates: start: 20200713, end: 20200715
  84. LORAZEPAM [Suspect]
     Active Substance: LORAZEPAM
     Indication: Anxiolytic therapy
     Dosage: 10 MILLIGRAM, ONCE A DAY
     Route: 048
     Dates: start: 20200726, end: 20200727
  85. LORAZEPAM [Suspect]
     Active Substance: LORAZEPAM
     Dosage: 2.5 MILLIGRAM, FOUR TIMES/DAY
     Route: 048
     Dates: start: 20200726, end: 20200727
  86. LORAZEPAM [Suspect]
     Active Substance: LORAZEPAM
     Dosage: 40 MILLIGRAM, ONCE A DAY
     Route: 048
     Dates: start: 20200726, end: 20200727
  87. ENOXAPARIN SODIUM [Suspect]
     Active Substance: ENOXAPARIN SODIUM
     Indication: Phlebitis
     Dosage: 6000 INTERNATIONAL UNIT,SINGLE
     Route: 058
     Dates: start: 20200708, end: 20200807
  88. ENOXAPARIN SODIUM [Suspect]
     Active Substance: ENOXAPARIN SODIUM
     Dosage: 180 KILO-INTERNATIONAL UNIT
     Route: 065
  89. METHYLPREDNISOLONE [Suspect]
     Active Substance: METHYLPREDNISOLONE
     Indication: Acute respiratory distress syndrome
     Dosage: 120 MILLIGRAM, ONCE A DAY
     Route: 042
     Dates: start: 20200708, end: 20200723
  90. METHYLPREDNISOLONE [Suspect]
     Active Substance: METHYLPREDNISOLONE
     Dosage: 1800 MILLIGRAM EVERY 2 WEEKS
     Route: 042
  91. METHYLPREDNISOLONE [Suspect]
     Active Substance: METHYLPREDNISOLONE
     Dosage: 1200 MILLIGRAM
     Route: 042
  92. METHYLPREDNISOLONE [Suspect]
     Active Substance: METHYLPREDNISOLONE
     Dosage: 1200 MILLIGRAM, ONCE A DAY
     Route: 042
     Dates: start: 20200708, end: 20200723
  93. MIDAZOLAM [Suspect]
     Active Substance: MIDAZOLAM
     Indication: Sedation
     Dosage: 5 MILLIGRAM (5 MG/HR, CO),PRE-FILLED SYRINGE
     Route: 042
     Dates: start: 20200709, end: 20200713
  94. MIDAZOLAM [Suspect]
     Active Substance: MIDAZOLAM
     Indication: Seizure
  95. MORPHINE HYDROCHLORIDE [Suspect]
     Active Substance: MORPHINE HYDROCHLORIDE
     Indication: Product used for unknown indication
     Dosage: UNK
     Route: 065
  96. MORPHINE SULFATE [Suspect]
     Active Substance: MORPHINE SULFATE
     Indication: Product used for unknown indication
     Dosage: UNK
     Route: 065
  97. NIMBEX [Suspect]
     Active Substance: CISATRACURIUM BESYLATE
     Indication: Endotracheal intubation
     Dosage: 20 MILLIGRAM, ONCE A DAY, SINGLE
     Route: 042
     Dates: start: 20200715, end: 20200715
  98. NIMBEX [Suspect]
     Active Substance: CISATRACURIUM BESYLATE
     Indication: Neuromuscular blocking therapy
  99. NOREPINEPHRINE [Suspect]
     Active Substance: NOREPINEPHRINE
     Indication: Sedation
     Dosage: 0.8 MG/HR, CO
     Route: 042
     Dates: start: 20200709, end: 20200712
  100. NOREPINEPHRINE [Suspect]
     Active Substance: NOREPINEPHRINE
     Indication: Sedation
     Dosage: 0.8 MILLIGRAM/HOUR,CO
     Route: 042
     Dates: start: 20200709, end: 20200712
  101. NOREPINEPHRINE [Suspect]
     Active Substance: NOREPINEPHRINE
     Dosage: 8 MILLIGRAM, ONCE A DAY
     Route: 042
     Dates: start: 20200709, end: 20200712
  102. OTILIMAB [Suspect]
     Active Substance: OTILIMAB
     Indication: Coronavirus infection
     Dosage: 1 DOSAGE FORM
     Route: 058
     Dates: start: 20200708
  103. OTILIMAB [Suspect]
     Active Substance: OTILIMAB
     Indication: COVID-19
  104. OXAZEPAM [Suspect]
     Active Substance: OXAZEPAM
     Indication: Anxiolytic therapy
     Dosage: 90 MILLIGRAM
     Route: 065
  105. OXAZEPAM [Suspect]
     Active Substance: OXAZEPAM
     Dosage: 20 MILLIGRAM
     Route: 065
  106. OXAZEPAM [Suspect]
     Active Substance: OXAZEPAM
     Dosage: 10 MILLIGRAM, ONCE A DAY
     Route: 048
     Dates: start: 20200802, end: 20200804
  107. OXAZEPAM [Suspect]
     Active Substance: OXAZEPAM
     Dosage: 20 MILLIGRAM, ONCE A DAY
     Route: 065
  108. OXAZEPAM [Suspect]
     Active Substance: OXAZEPAM
     Dosage: 90 MILLIGRAM, ONCE A DAY
     Route: 065
  109. CALCIUM PHOSPHATE, DIBASIC, ANHYDROUS\MAGNESIUM GLYCEROPHOSPHATE\PHOSP [Suspect]
     Active Substance: CALCIUM PHOSPHATE, DIBASIC, ANHYDROUS\MAGNESIUM GLYCEROPHOSPHATE\PHOSPHORIC ACID\SODIUM PHOSPHATE, D
     Indication: Pneumonia
     Dosage: 6 GRAM, ONCE A DAY
     Route: 042
     Dates: start: 20200708, end: 20200715
  110. CALCIUM PHOSPHATE, DIBASIC, ANHYDROUS\MAGNESIUM GLYCEROPHOSPHATE\PHOSP [Suspect]
     Active Substance: CALCIUM PHOSPHATE, DIBASIC, ANHYDROUS\MAGNESIUM GLYCEROPHOSPHATE\PHOSPHORIC ACID\SODIUM PHOSPHATE, D
     Dosage: 40 GRAM
     Route: 065
  111. PROPOFOL [Suspect]
     Active Substance: PROPOFOL
     Indication: Sedation
     Dosage: 150 MILLIGRAM 1 HOUR
     Route: 042
     Dates: start: 20200709, end: 20200720
  112. POTASSIUM CHLORIDE [Suspect]
     Active Substance: POTASSIUM CHLORIDE
     Indication: Product used for unknown indication
     Dosage: UNK
     Route: 042
  113. POTASSIUM GLUCONATE [Suspect]
     Active Substance: POTASSIUM GLUCONATE
     Indication: Product used for unknown indication
     Dosage: UNK
     Route: 065
  114. SPIRAMYCIN [Suspect]
     Active Substance: SPIRAMYCIN
     Indication: Pneumonia
     Dosage: 9 MEGA-INTERNATIONAL UNIT, ONCE A DAY (3 MILLION IU, TID)
     Route: 042
     Dates: start: 20200708, end: 20200715
  115. SPIRAMYCIN [Suspect]
     Active Substance: SPIRAMYCIN
     Dosage: 63 INTERNATIONAL UNIT
     Route: 065
  116. OXAZEPAM [Suspect]
     Active Substance: OXAZEPAM
     Indication: Anxiolytic therapy
     Dosage: 10 MILLIGRAM, ONCE A DAY
     Route: 048
     Dates: start: 20200802, end: 20200804
  117. OXAZEPAM [Suspect]
     Active Substance: OXAZEPAM
     Dosage: 20 MILLIGRAM, ONCE A DAY
     Route: 048
  118. SUFENTANIL [Suspect]
     Active Substance: SUFENTANIL
     Indication: Sedation
     Dosage: 0.33 UG/MIN, CO
     Route: 042
     Dates: start: 20200709, end: 20200717
  119. SUFENTANIL [Suspect]
     Active Substance: SUFENTANIL
     Indication: Gait disturbance
     Dosage: 33 MICROGRAM
     Route: 042
     Dates: start: 20200709, end: 20200717
  120. LORAZEPAM [Suspect]
     Active Substance: LORAZEPAM
     Indication: Anxiolytic therapy
     Dosage: 10 MILLIGRAM, ONCE A DAY
     Route: 048
     Dates: start: 20200726, end: 20200727
  121. LORAZEPAM [Suspect]
     Active Substance: LORAZEPAM
     Dosage: 2.5 MILLIGRAM, FOUR TIMES/DAY
     Route: 048
     Dates: start: 20200726, end: 20200727
  122. LORAZEPAM [Suspect]
     Active Substance: LORAZEPAM
     Dosage: 40 MILLIGRAM, ONCE A DAY
     Route: 048
     Dates: start: 20200726, end: 20200727
  123. RACECADOTRIL [Suspect]
     Active Substance: RACECADOTRIL
     Indication: Product used for unknown indication
     Dosage: UNK
     Route: 065
     Dates: start: 20200727, end: 20200804
  124. RACECADOTRIL [Suspect]
     Active Substance: RACECADOTRIL
     Dosage: 100 MILLIGRAM
     Route: 058
     Dates: start: 20200727, end: 20200804
  125. THIAMINE HYDROCHLORIDE [Suspect]
     Active Substance: THIAMINE HYDROCHLORIDE
     Indication: Product used for unknown indication
     Dosage: UNK
     Route: 065
  126. RACECADOTRIL [Suspect]
     Active Substance: RACECADOTRIL
     Indication: Product used for unknown indication
     Dosage: UNK
     Route: 065
  127. AMIODARONE [Concomitant]
     Active Substance: AMIODARONE
     Indication: Product used for unknown indication
     Dosage: UNK
     Route: 065
  128. ATORVASTATIN [Concomitant]
     Active Substance: ATORVASTATIN
     Indication: Product used for unknown indication
     Dosage: UNK
     Route: 065
  129. ATORVASTATIN [Concomitant]
     Active Substance: ATORVASTATIN
     Dosage: UNK
     Route: 065
  130. HYDROXYUREA [Concomitant]
     Active Substance: HYDROXYUREA
     Indication: Product used for unknown indication
     Dosage: UNK
     Route: 065
     Dates: start: 20200709, end: 20200712
  131. KARDEGIC [Concomitant]
     Active Substance: ASPIRIN DL-LYSINE
     Indication: Product used for unknown indication
     Dosage: UNK
     Route: 065
  132. POTASSIUM GLUCONATE [Concomitant]
     Active Substance: POTASSIUM GLUCONATE
     Indication: Product used for unknown indication
     Dosage: UNK
     Route: 065

REACTIONS (1)
  - Toxic epidermal necrolysis [Fatal]

NARRATIVE: CASE EVENT DATE: 20200809
